FAERS Safety Report 9169678 (Version 3)
Quarter: 2013Q3

REPORT INFORMATION
  Report Type: Spontaneous
  Country: JP (occurrence: JP)
  Receive Date: 20130318
  Receipt Date: 20130906
  Transmission Date: 20140515
  Serious: Yes (Other)
  Sender: FDA-Public Use
  Company Number: JP-PFIZER INC-2011144677

PATIENT
  Age: 44 Year
  Sex: Male
  Weight: 69 kg

DRUGS (3)
  1. LYRICA [Suspect]
     Indication: NEURALGIA
     Dosage: 75 MG, 1X/DAY
     Route: 048
     Dates: start: 201102, end: 20110309
  2. LOXONIN [Concomitant]
     Indication: NEURALGIA
     Dosage: 60 MG, 3X/DAY
     Route: 048
     Dates: start: 201102
  3. SELBEX [Concomitant]
     Indication: NEURALGIA
     Dosage: 50 MG, 3X/DAY
     Route: 048
     Dates: start: 201102

REACTIONS (4)
  - Drug eruption [Recovering/Resolving]
  - Erythema [Recovering/Resolving]
  - Eyelid oedema [Recovering/Resolving]
  - Hepatic function abnormal [Recovering/Resolving]
